FAERS Safety Report 10259479 (Version 1)
Quarter: 2014Q2

REPORT INFORMATION
  Report Type: Spontaneous
  Country: CN (occurrence: CN)
  Receive Date: 20140625
  Receipt Date: 20140625
  Transmission Date: 20141212
  Serious: Yes (Other)
  Sender: FDA-Public Use
  Company Number: CN-PFIZER INC-2014173856

PATIENT
  Age: 55 Year
  Sex: Female
  Weight: 60 kg

DRUGS (3)
  1. PHARMORUBICIN [Suspect]
     Indication: THYROID CANCER
     Dosage: 70 MG, 1X/DAY
     Route: 041
     Dates: start: 20131203, end: 20131203
  2. ETOPOSIDE [Suspect]
     Indication: THYROID CANCER
     Dosage: 0.1 G, 1X/DAY
     Dates: start: 20131203, end: 20131205
  3. DEXIBUPROFEN [Suspect]
     Dosage: 60 MG, 1X/DAY
     Route: 041
     Dates: start: 20131203, end: 20131205

REACTIONS (7)
  - Electrocardiogram QT prolonged [Unknown]
  - Nausea [Recovered/Resolved]
  - Vomiting [Recovered/Resolved]
  - Faecal incontinence [Recovered/Resolved]
  - Urinary incontinence [Recovered/Resolved]
  - Dizziness [Recovered/Resolved]
  - Blood pressure decreased [Recovered/Resolved]
